FAERS Safety Report 15280763 (Version 1)
Quarter: 2018Q3

REPORT INFORMATION
  Report Type: Spontaneous
  Country: US (occurrence: US)
  Receive Date: 20180731
  Receipt Date: 20180731
  Transmission Date: 20181010
  Serious: Yes (Disabling)
  Sender: FDA-Public Use
  Company Number: None

PATIENT
  Age: 6 Year
  Sex: Male
  Weight: 14.85 kg

DRUGS (4)
  1. SINGULAIR [Suspect]
     Active Substance: MONTELUKAST SODIUM
     Indication: CHRONIC SINUSITIS
     Route: 048
  2. FLOVENT [Concomitant]
     Active Substance: FLUTICASONE PROPIONATE
  3. QNASL [Concomitant]
     Active Substance: BECLOMETHASONE DIPROPIONATE
  4. VENTOLIN [Concomitant]
     Active Substance: ALBUTEROL SULFATE

REACTIONS (11)
  - Irritability [None]
  - Hostility [None]
  - Mood swings [None]
  - Crying [None]
  - Enuresis [None]
  - Urinary incontinence [None]
  - Anxiety [None]
  - Disorientation [None]
  - Nightmare [None]
  - Aggression [None]
  - Amnesia [None]
